FAERS Safety Report 9068574 (Version 3)
Quarter: 2013Q1

REPORT INFORMATION
  Report Type: Report from Study
  Country: US (occurrence: US)
  Receive Date: 20130128
  Receipt Date: 20130304
  Transmission Date: 20140127
  Serious: Yes (Hospitalization)
  Sender: FDA-Public Use
  Company Number: US-ELI_LILLY_AND_COMPANY-US201301005176

PATIENT
  Age: 10 Year
  Sex: Male
  Weight: 63 kg

DRUGS (2)
  1. PLACEBO [Suspect]
     Indication: GENERALISED ANXIETY DISORDER
     Dosage: UNK
     Dates: start: 20121003, end: 20121210
  2. DULOXETINE HYDROCHLORIDE [Suspect]
     Indication: GENERALISED ANXIETY DISORDER
     Dosage: 90 MG, QD
     Route: 048
     Dates: start: 20121211, end: 20130112

REACTIONS (1)
  - Psychotic disorder [Recovered/Resolved]
